FAERS Safety Report 10558043 (Version 3)
Quarter: 2015Q1

REPORT INFORMATION
  Report Type: Spontaneous
  Country: JP (occurrence: JP)
  Receive Date: 20141031
  Receipt Date: 20150323
  Transmission Date: 20150720
  Serious: Yes (Death)
  Sender: FDA-Public Use
  Company Number: JP-TEVA-518535ISR

PATIENT
  Age: 31 Year
  Sex: Male
  Weight: 62 kg

DRUGS (13)
  1. E-FEN BUCCAL [Suspect]
     Active Substance: FENTANYL CITRATE
     Indication: BREAKTHROUGH PAIN
     Dosage: 100 MICROGRAM DAILY;
     Route: 002
     Dates: start: 20140925, end: 20140927
  2. E-FEN BUCCAL [Suspect]
     Active Substance: FENTANYL CITRATE
     Dosage: DAILY DOSE: 150 - 900 MICROGRAM
     Route: 002
     Dates: start: 20140930, end: 20141006
  3. FENTOS [Concomitant]
     Active Substance: FENTANYL
     Indication: CANCER PAIN
     Dosage: 2 MILLIGRAM DAILY;
     Route: 062
     Dates: start: 20140929, end: 20140929
  4. FENTOS [Concomitant]
     Active Substance: FENTANYL
     Dosage: 4 MILLIGRAM DAILY;
     Route: 062
     Dates: start: 20141002, end: 20141010
  5. PHOSRIBBON [Concomitant]
     Indication: HYPOPHOSPHATAEMIA
     Dosage: 15 DOSAGE FORMS DAILY;
     Route: 048
     Dates: end: 20141017
  6. BENZBROMARONE [Concomitant]
     Active Substance: BENZBROMARONE
     Indication: HYPERURICAEMIA
     Dosage: 50 MILLIGRAM DAILY;
     Route: 048
     Dates: end: 20141017
  7. DENOTAS [Concomitant]
     Active Substance: CALCIUM CARBONATE\CHOLECALCIFEROL\MAGNESIUM CARBONATE
     Indication: HYPOCALCAEMIA
     Dosage: 2 DOSAGE FORMS DAILY;
     Route: 048
     Dates: end: 20141017
  8. E-FEN BUCCAL [Suspect]
     Active Substance: FENTANYL CITRATE
     Dosage: 200 MICROGRAM DAILY;
     Route: 002
     Dates: start: 20140928, end: 20140929
  9. E-FEN BUCCAL [Suspect]
     Active Substance: FENTANYL CITRATE
     Dosage: 150 MICROGRAM DAILY;
     Route: 002
     Dates: start: 20141008, end: 20141011
  10. FENTOS [Concomitant]
     Active Substance: FENTANYL
     Dosage: 3 MILLIGRAM DAILY;
     Route: 062
     Dates: start: 20140930, end: 20141001
  11. FENTOS [Concomitant]
     Active Substance: FENTANYL
     Dosage: 6 MILLIGRAM DAILY;
     Route: 062
     Dates: start: 20141011, end: 20141017
  12. MORPHINE SULFATE HYDRATE [Concomitant]
     Indication: CANCER PAIN
     Route: 048
     Dates: end: 20140926
  13. OXYCODONE [Concomitant]
     Active Substance: OXYCODONE
     Indication: CANCER PAIN
     Dosage: 10 MILLIGRAM DAILY;
     Route: 048
     Dates: start: 20140927, end: 20140928

REACTIONS (1)
  - Condition aggravated [Fatal]

NARRATIVE: CASE EVENT DATE: 20141017
